FAERS Safety Report 4873979-1 (Version None)
Quarter: 2006Q1

REPORT INFORMATION
  Report Type: 
  Country: None (occurrence: None)
  Receive Date: 20060104
  Receipt Date: 20051227
  Transmission Date: 20060701
  Serious: Yes (Hospitalization)
  Sender: FDA-Public Use
  Company Number: KII-2005-0020452

PATIENT
  Age: 12 Month
  Sex: Female

DRUGS (1)
  1. MORPHINE SULFATE [Suspect]
     Indication: ACCIDENTAL DRUG INTAKE BY CHILD
     Dosage: SINGLE, ORAL
     Route: 048
     Dates: start: 20051128, end: 20051128

REACTIONS (3)
  - ACCIDENTAL DRUG INTAKE BY CHILD [None]
  - HYPOTENSION [None]
  - SOMNOLENCE [None]
